FAERS Safety Report 5935692-9 (Version None)
Quarter: 2008Q4

REPORT INFORMATION
  Report Type: 
  Country: None (occurrence: None)
  Receive Date: 20081030
  Receipt Date: 20081020
  Transmission Date: 20090506
  Serious: Yes (Hospitalization)
  Sender: FDA-Public Use
  Company Number: CN-WATSON-2008-06236

PATIENT
  Age: 34 Year
  Sex: Female

DRUGS (1)
  1. TRELSTAR DEPOT MIXJECT (WATSON LABORATORIES) [Suspect]
     Indication: ENDOMETRIOSIS
     Dosage: 3.75 MG, SINGLE
     Route: 030
     Dates: start: 20080923, end: 20080923

REACTIONS (7)
  - ALANINE AMINOTRANSFERASE INCREASED [None]
  - HEADACHE [None]
  - NAUSEA [None]
  - SKIN HAEMORRHAGE [None]
  - VISION BLURRED [None]
  - VOMITING [None]
  - WHITE BLOOD CELL COUNT DECREASED [None]
